FAERS Safety Report 18336639 (Version 1)
Quarter: 2020Q4

REPORT INFORMATION
  Report Type: Spontaneous
  Country: US (occurrence: US)
  Receive Date: 20201001
  Receipt Date: 20201001
  Transmission Date: 20210113
  Serious: No
  Sender: FDA-Public Use
  Company Number: US-BAUSCH-BL-2020-027314

PATIENT
  Age: 65 Year
  Sex: Male

DRUGS (8)
  1. PROLENSA [Suspect]
     Active Substance: BROMFENAC SODIUM
     Indication: POSTOPERATIVE CARE
     Dosage: APPROXIMATELY 45 DAYS AGO FOR RIGHT EYE
     Route: 047
     Dates: start: 202008
  2. CARVEDILOL. [Concomitant]
     Active Substance: CARVEDILOL
     Indication: PRODUCT USED FOR UNKNOWN INDICATION
     Route: 048
  3. PROLENSA [Suspect]
     Active Substance: BROMFENAC SODIUM
     Dosage: APPROXIMATELY 36 DAYS AGO FOR LEFT EYE
     Route: 047
     Dates: start: 202008
  4. DIGOXIN. [Concomitant]
     Active Substance: DIGOXIN
     Indication: PRODUCT USED FOR UNKNOWN INDICATION
     Dosage: AS DIRECTED
     Route: 048
  5. LOTEMAX [Suspect]
     Active Substance: LOTEPREDNOL ETABONATE
     Indication: POSTOPERATIVE CARE
     Dosage: AS DIRECTED, APPROXIMATELY 45 DAYS AGO FOR RIGHT EYE WITH A TAPERING DOSE
     Route: 047
     Dates: start: 202008, end: 202008
  6. ENTRESTO [Concomitant]
     Active Substance: SACUBITRIL\VALSARTAN
     Indication: PRODUCT USED FOR UNKNOWN INDICATION
     Dosage: STRENGTH: 24/26 MG
     Route: 048
  7. LOTEMAX [Suspect]
     Active Substance: LOTEPREDNOL ETABONATE
     Dosage: AS DIRECTED, APPROXIMATELY 36 DAYS AGO FOR LEFT EYE
     Route: 047
     Dates: start: 202008, end: 202008
  8. TORSEMIDE. [Concomitant]
     Active Substance: TORSEMIDE
     Indication: PRODUCT USED FOR UNKNOWN INDICATION
     Dosage: AS DIRECTED
     Route: 048

REACTIONS (8)
  - Product prescribing error [Unknown]
  - Eye oedema [Not Recovered/Not Resolved]
  - Impaired healing [Not Recovered/Not Resolved]
  - Photophobia [Not Recovered/Not Resolved]
  - Vision blurred [Unknown]
  - Product use complaint [Unknown]
  - Ocular discomfort [Unknown]
  - Product administration error [Unknown]

NARRATIVE: CASE EVENT DATE: 2020
